FAERS Safety Report 6346344-8 (Version None)
Quarter: 2009Q3

REPORT INFORMATION
  Report Type: 
  Country: None (occurrence: None)
  Receive Date: 20090909
  Receipt Date: 20090828
  Transmission Date: 20100115
  Serious: Yes (Other)
  Sender: FDA-Public Use
  Company Number: GB-AMGEN-US362751

PATIENT

DRUGS (2)
  1. ENBREL [Suspect]
     Indication: ANKYLOSING SPONDYLITIS
     Dosage: 50 MG FREQUENCY UNKNOWN
     Route: 058
     Dates: start: 20070101, end: 20090801
  2. ARCOXIA [Concomitant]
     Dosage: UKNOWN
     Route: 048

REACTIONS (1)
  - TUBERCULOSIS [None]
